FAERS Safety Report 16148743 (Version 1)
Quarter: 2019Q2

REPORT INFORMATION
  Report Type: Report from Study
  Country: RO (occurrence: RO)
  Receive Date: 20190402
  Receipt Date: 20190402
  Transmission Date: 20190711
  Serious: Yes (Hospitalization)
  Sender: FDA-Public Use
  Company Number: RO-GILEAD-2019-0399680

PATIENT
  Age: 60 Year
  Sex: Female

DRUGS (6)
  1. SORTIS [Concomitant]
     Active Substance: ATORVASTATIN
  2. CONTROLOC CONTROL [Concomitant]
  3. ZOMEN [Concomitant]
  4. TERTENSIF [Concomitant]
     Active Substance: INDAPAMIDE
  5. LEDIPASVIR/SOFOSBUVIR [Suspect]
     Active Substance: LEDIPASVIR\SOFOSBUVIR
     Indication: CHRONIC HEPATITIS C
     Dosage: 1 DF, QD
     Route: 048
     Dates: start: 20190228
  6. CONCOR [Concomitant]
     Active Substance: BISOPROLOL FUMARATE

REACTIONS (7)
  - Cardiac disorder [Recovered/Resolved]
  - Dizziness [Recovered/Resolved]
  - Dyspnoea [Recovering/Resolving]
  - Headache [Recovered/Resolved]
  - Hypoaesthesia [Not Recovered/Not Resolved]
  - Fatigue [Not Recovered/Not Resolved]
  - Asthenia [Not Recovered/Not Resolved]

NARRATIVE: CASE EVENT DATE: 20190228
